FAERS Safety Report 8355299-6 (Version None)
Quarter: 2012Q2

REPORT INFORMATION
  Report Type: 
  Country: None (occurrence: None)
  Receive Date: 20120511
  Receipt Date: 20120501
  Transmission Date: 20120825
  Serious: No
  Sender: FDA-Public Use
  Company Number: US-BAYER-2012-045386

PATIENT
  Sex: Female

DRUGS (1)
  1. NAPROXEN SODIUM [Suspect]
     Indication: ANALGESIC THERAPY
     Route: 048

REACTIONS (3)
  - ARTHRALGIA [None]
  - NO ADVERSE EVENT [None]
  - INSOMNIA [None]
